FAERS Safety Report 6501689-3 (Version None)
Quarter: 2009Q4

REPORT INFORMATION
  Report Type: 
  Country: None (occurrence: None)
  Receive Date: 20091216
  Receipt Date: 20090708
  Transmission Date: 20100525
  Serious: No
  Sender: FDA-Public Use
  Company Number: US-AMGEN-KDL354823

PATIENT
  Sex: Female

DRUGS (1)
  1. ARANESP [Suspect]
     Indication: MYELODYSPLASTIC SYNDROME
     Dates: start: 20090707

REACTIONS (4)
  - ARTHRALGIA [None]
  - FEELING ABNORMAL [None]
  - MYALGIA [None]
  - PARAESTHESIA [None]
